FAERS Safety Report 4887451-6 (Version None)
Quarter: 2006Q1

REPORT INFORMATION
  Report Type: 
  Country: None (occurrence: None)
  Receive Date: 20060123
  Receipt Date: 20060113
  Transmission Date: 20060701
  Serious: Yes (Hospitalization)
  Sender: FDA-Public Use
  Company Number: PHRM2006FR00507

PATIENT
  Age: 28 Year
  Sex: Male

DRUGS (3)
  1. FLUVOXAMINE MALEATE [Concomitant]
  2. LEPONEX [Suspect]
     Dosage: 900 MG, DAILY
     Route: 048
  3. LEPONEX [Suspect]
     Dosage: 300 MG, DAILY
     Route: 048

REACTIONS (5)
  - APPENDICECTOMY [None]
  - APPENDICITIS [None]
  - LEUKOCYTOSIS [None]
  - NEUTROPHILIA [None]
  - PYREXIA [None]
